FAERS Safety Report 10089770 (Version 1)
Quarter: 2014Q2

REPORT INFORMATION
  Report Type: Spontaneous
  Country: US (occurrence: US)
  Receive Date: 20140421
  Receipt Date: 20140421
  Transmission Date: 20141212
  Serious: No
  Sender: FDA-Public Use
  Company Number: US-PFIZER INC-2014110421

PATIENT
  Age: 51 Year
  Sex: Male
  Weight: 136.05 kg

DRUGS (2)
  1. CHANTIX [Suspect]
     Indication: SMOKING CESSATION THERAPY
     Dosage: 0.5 MG, 1X/DAY
     Route: 048
     Dates: start: 20140402, end: 20140418
  2. PROCARDIA [Concomitant]
     Indication: HYPERTENSION
     Dosage: 50 MG, 2X/DAY

REACTIONS (6)
  - Drug intolerance [Not Recovered/Not Resolved]
  - Flatulence [Not Recovered/Not Resolved]
  - Diarrhoea [Not Recovered/Not Resolved]
  - Abnormal behaviour [Not Recovered/Not Resolved]
  - Activities of daily living impaired [Not Recovered/Not Resolved]
  - Condition aggravated [Not Recovered/Not Resolved]
